FAERS Safety Report 21298590 (Version 1)
Quarter: 2022Q3

REPORT INFORMATION
  Report Type: Spontaneous
  Country: US (occurrence: US)
  Receive Date: 20220906
  Receipt Date: 20220906
  Transmission Date: 20221027
  Serious: Yes (Other)
  Sender: FDA-Public Use
  Company Number: US-PPDUS-2022ST000026

PATIENT
  Sex: Male

DRUGS (3)
  1. ELZONRIS [Suspect]
     Active Substance: TAGRAXOFUSP-ERZS
     Indication: Product used for unknown indication
     Dosage: FIRST DOSE
     Route: 042
     Dates: start: 20220215
  2. ELZONRIS [Suspect]
     Active Substance: TAGRAXOFUSP-ERZS
     Dosage: SECOND DOSE
     Route: 042
     Dates: start: 20220216
  3. ELZONRIS [Suspect]
     Active Substance: TAGRAXOFUSP-ERZS
     Dosage: THIRD DOSE
     Route: 042
     Dates: start: 20220217

REACTIONS (2)
  - Hepatotoxicity [Unknown]
  - Liver function test increased [Unknown]
